FAERS Safety Report 8016627-4 (Version None)
Quarter: 2011Q4

REPORT INFORMATION
  Report Type: 
  Country: None (occurrence: None)
  Receive Date: 20111231
  Receipt Date: 20111222
  Transmission Date: 20120403
  Serious: Yes (Other)
  Sender: FDA-Public Use
  Company Number: PHHY2011FR104304

PATIENT
  Age: 39 Year
  Sex: Female

DRUGS (5)
  1. PREDNISONE [Suspect]
     Dosage: 10 MG, QD
  2. PREDNISONE [Suspect]
     Dosage: 1 MG/KG, QD
  3. CORTICOSTEROIDS [Suspect]
     Indication: HYPOTENSION
     Route: 042
  4. PREDNISONE [Suspect]
     Dosage: 30 MG, QD
  5. PREDNISONE [Suspect]
     Dosage: 02 BOLUS
     Route: 042

REACTIONS (4)
  - ROSEOLOVIRUS TEST POSITIVE [None]
  - SKIN DISORDER [None]
  - DRUG RASH WITH EOSINOPHILIA AND SYSTEMIC SYMPTOMS [None]
  - RENAL DISORDER [None]
